FAERS Safety Report 4607342-5 (Version None)
Quarter: 2005Q1

REPORT INFORMATION
  Report Type: 
  Country: None (occurrence: None)
  Receive Date: 20050311
  Receipt Date: 20050311
  Transmission Date: 20050727
  Serious: No
  Sender: FDA-Public Use
  Company Number: None

PATIENT
  Age: 56 Year
  Sex: Female
  Weight: 77.1115 kg

DRUGS (1)
  1. ZETIA [Suspect]
     Indication: CORONARY ARTERY DISEASE
     Dosage: PO 1 QD @ HS

REACTIONS (8)
  - ABDOMINAL DISTENSION [None]
  - ABDOMINAL PAIN [None]
  - HEADACHE [None]
  - MOUTH HAEMORRHAGE [None]
  - MUSCULAR WEAKNESS [None]
  - PALPITATIONS [None]
  - SKIN ULCER [None]
  - SLEEP APNOEA SYNDROME [None]
